FAERS Safety Report 21047279 (Version 2)
Quarter: 2022Q3

REPORT INFORMATION
  Report Type: Other
  Country: US (occurrence: None)
  Receive Date: 20220706
  Receipt Date: 20220823
  Transmission Date: 20221027
  Serious: Yes (Hospitalization)
  Sender: FDA-Public Use
  Company Number: US-ROCHE-3133243

PATIENT
  Age: 68 Year
  Sex: Male
  Weight: 79.450 kg

DRUGS (7)
  1. OCREVUS [Suspect]
     Active Substance: OCRELIZUMAB
     Indication: Relapsing-remitting multiple sclerosis
     Dosage: ON DAY 1 AND DAY 15 THEN 600 MG EVERY 6 MONTHS
     Route: 042
     Dates: start: 2017
  2. IVERMECTIN [Concomitant]
     Active Substance: IVERMECTIN
     Indication: COVID-19
     Route: 048
     Dates: start: 20220629
  3. PREDNISONE [Concomitant]
     Active Substance: PREDNISONE
     Indication: COVID-19
     Route: 048
     Dates: start: 20220629
  4. DOXYCYCLINE [Concomitant]
     Active Substance: DOXYCYCLINE
     Indication: COVID-19
     Route: 048
     Dates: start: 20220629
  5. DEXAMETHASONE [Concomitant]
     Active Substance: DEXAMETHASONE
     Indication: Inflammation
     Route: 048
     Dates: start: 20220629
  6. TEMAZEPAM [Concomitant]
     Active Substance: TEMAZEPAM
     Route: 048
     Dates: start: 20220629
  7. BACLOFEN [Concomitant]
     Active Substance: BACLOFEN

REACTIONS (3)
  - COVID-19 pneumonia [Recovered/Resolved]
  - Hypoxia [Unknown]
  - Pulmonary embolism [Recovered/Resolved]

NARRATIVE: CASE EVENT DATE: 20220624
